FAERS Safety Report 9977489 (Version 1)
Quarter: 2014Q1

REPORT INFORMATION
  Report Type: Report from Study
  Country: US (occurrence: US)
  Receive Date: 20140306
  Receipt Date: 20140306
  Transmission Date: 20141002
  Serious: No
  Sender: FDA-Public Use
  Company Number: US-ABBVIE-13P-163-1163106-00

PATIENT
  Age: 58 Year
  Sex: Female

DRUGS (16)
  1. HUMIRA [Suspect]
     Indication: ANKYLOSING SPONDYLITIS
     Dosage: INITIAL DOSE
     Dates: start: 20131016
  2. ENAPRIL [Concomitant]
     Indication: HYPERTENSION
  3. PRILOSEC [Concomitant]
     Indication: GASTROOESOPHAGEAL REFLUX DISEASE
  4. ASA [Concomitant]
     Indication: PROPHYLAXIS
  5. NABUMETONE [Concomitant]
     Indication: ARTHRITIS
  6. GLYBURIDE [Concomitant]
     Indication: DIABETES MELLITUS
  7. METFORMIN HYDROCHLORIDE [Concomitant]
     Indication: DIABETES MELLITUS
  8. SIMVASTATIN [Concomitant]
     Indication: BLOOD CHOLESTEROL INCREASED
  9. EVISTA [Concomitant]
     Indication: ARTHRITIS
  10. XANAX [Concomitant]
     Indication: ANXIETY
     Dosage: AS NEEDED
  11. NORCO [Concomitant]
     Indication: PAIN
  12. NORCO [Concomitant]
     Indication: ANKYLOSING SPONDYLITIS
  13. OCUVITE LUTEIN [Concomitant]
     Indication: MACULAR DEGENERATION
  14. CALCIUM [Concomitant]
     Indication: MINERAL SUPPLEMENTATION
  15. CETIRIZINE [Concomitant]
     Indication: HYPERSENSITIVITY
  16. CHANTIX [Concomitant]
     Indication: SMOKING CESSATION THERAPY

REACTIONS (5)
  - Wrong technique in drug usage process [Not Recovered/Not Resolved]
  - Incorrect dose administered [Not Recovered/Not Resolved]
  - Neck pain [Not Recovered/Not Resolved]
  - Spinal pain [Not Recovered/Not Resolved]
  - Arthralgia [Not Recovered/Not Resolved]
